FAERS Safety Report 17966022 (Version 1)
Quarter: 2020Q3

REPORT INFORMATION
  Report Type: Spontaneous
  Country: CA (occurrence: CA)
  Receive Date: 20200701
  Receipt Date: 20200701
  Transmission Date: 20201103
  Serious: Yes (Life-Threatening, Hospitalization, Other)
  Sender: FDA-Public Use
  Company Number: CA-ACCORD-187552

PATIENT
  Age: 39 Year
  Sex: Male

DRUGS (4)
  1. PANTOPRAZOLE [Concomitant]
     Active Substance: PANTOPRAZOLE
  2. OXALIPLATIN. [Concomitant]
     Active Substance: OXALIPLATIN
  3. SULFAMETHOXAZOLE/TRIMETHOPRIM [Concomitant]
     Active Substance: SULFAMETHOXAZOLE\TRIMETHOPRIM
  4. CAPECITABINE. [Suspect]
     Active Substance: CAPECITABINE
     Indication: RECTAL ADENOCARCINOMA
     Route: 048

REACTIONS (6)
  - Left ventricular dysfunction [Recovered/Resolved]
  - Pericarditis [Recovered/Resolved]
  - Musculoskeletal pain [Recovered/Resolved]
  - Ejection fraction abnormal [Recovered/Resolved]
  - Cardiac hypertrophy [Recovered/Resolved]
  - Myocarditis [Recovered/Resolved]
